FAERS Safety Report 11131529 (Version 1)
Quarter: 2015Q2

REPORT INFORMATION
  Report Type: Spontaneous
  Country: GB (occurrence: GB)
  Receive Date: 20150522
  Receipt Date: 20150522
  Transmission Date: 20150821
  Serious: Yes (Hospitalization, Other)
  Sender: FDA-Public Use
  Company Number: GB-PFIZER INC-2015165081

PATIENT
  Age: 45 Year
  Sex: Male

DRUGS (7)
  1. AVASTIN [Suspect]
     Active Substance: BEVACIZUMAB
     Indication: OESOPHAGEAL ADENOCARCINOMA
     Dosage: 625 MG (CYCLE 1, DATE OF MOST RECENT ADMINISTRATION: 02JUL2009)
     Route: 042
     Dates: start: 20090702
  2. EPIRUBICIN HCL [Suspect]
     Active Substance: EPIRUBICIN HYDROCHLORIDE
     Indication: OESOPHAGEAL ADENOCARCINOMA
     Dosage: 100 MG (CYCLE 1, DATE OF MOST RECENT ADMINISTRATION: 02JUL2009)
     Route: 042
     Dates: start: 20090702
  3. DEXAMETHASONE. [Concomitant]
     Active Substance: DEXAMETHASONE
     Dosage: UNK
     Route: 048
     Dates: start: 20090703, end: 20090705
  4. METOCLOPRAMIDE. [Concomitant]
     Active Substance: METOCLOPRAMIDE
     Dosage: UNK
     Route: 048
     Dates: start: 20090702, end: 20090707
  5. XELODA [Suspect]
     Active Substance: CAPECITABINE
     Indication: OESOPHAGEAL ADENOCARCINOMA
     Dosage: 17500 MG (CYCLE 1, DATE OF MOST RECENT ADMINISTRATION: 02JUL2009)
     Route: 048
     Dates: start: 20090702
  6. CISPLATIN. [Suspect]
     Active Substance: CISPLATIN
     Indication: OESOPHAGEAL ADENOCARCINOMA
     Dosage: 120 MG (CYCLE 1, DATE OF MOST RECENT ADMINISTRATION: 02JUL2009)
     Route: 042
     Dates: start: 20090702
  7. LANSOPRAZOLE. [Concomitant]
     Active Substance: LANSOPRAZOLE
     Dosage: UNK
     Route: 048

REACTIONS (5)
  - Dehydration [Not Recovered/Not Resolved]
  - Dysphagia [Unknown]
  - Nausea [Unknown]
  - Vomiting [Unknown]
  - Chest pain [Unknown]

NARRATIVE: CASE EVENT DATE: 20090709
